FAERS Safety Report 9096424 (Version 1)
Quarter: 2013Q1

REPORT INFORMATION
  Report Type: Spontaneous
  Country: IT (occurrence: None)
  Receive Date: 20130124
  Receipt Date: 20130124
  Transmission Date: 20140127
  Serious: Yes (Hospitalization)
  Sender: FDA-Public Use
  Company Number: 1568149

PATIENT
  Age: 82 Year
  Sex: Female

DRUGS (3)
  1. GEMCITABINE HYDROCHLORIDE [Suspect]
     Indication: PANCREATIC CARCINOMA
     Dosage: 1000 MG/MQ EVERY 7 DAYS INTRAVENOUS DRIP
  2. GEMCITABINE HYDROCHLORIDE [Suspect]
     Indication: METASTASES TO LUNG
     Dosage: 1000 MG/MQ EVERY 7 DAYS INTRAVENOUS DRIP
  3. GEMCITABINE HYDROCHLORIDE [Suspect]
     Indication: METASTASES TO LIVER
     Dosage: 1000 MG/MQ EVERY 7 DAYS INTRAVENOUS DRIP

REACTIONS (8)
  - Skin necrosis [None]
  - Pain [None]
  - Paraesthesia [None]
  - Oedema [None]
  - Anaemia [None]
  - Leukocytosis [None]
  - Metastasis [None]
  - Disease progression [None]
